FAERS Safety Report 9852310 (Version 2)
Quarter: 2014Q1

REPORT INFORMATION
  Report Type: Spontaneous
  Country: DE (occurrence: DE)
  Receive Date: 20140129
  Receipt Date: 20140213
  Transmission Date: 20141002
  Serious: No
  Sender: FDA-Public Use
  Company Number: DE-ELI_LILLY_AND_COMPANY-DE201401007540

PATIENT
  Age: 51 Year
  Sex: Male

DRUGS (6)
  1. CYMBALTA [Suspect]
     Indication: MAJOR DEPRESSION
     Dosage: 60 MG, EACH MORNING
     Route: 048
     Dates: start: 20130723, end: 20130729
  2. CYMBALTA [Suspect]
     Dosage: 90 MG, EACH MORNING
     Dates: start: 20130730, end: 20130930
  3. MIRTAZAPIN [Concomitant]
     Indication: DEPRESSION
     Dosage: 45 MG, UNKNOWN
     Route: 065
  4. VALDOXAN [Concomitant]
     Indication: DEPRESSION
     Dosage: 1 DF, UNK
     Route: 065
     Dates: start: 20130506, end: 20130526
  5. VALDOXAN [Concomitant]
     Dosage: 50 MG, UNK
     Dates: start: 20130527, end: 20130917
  6. VALDOXAN [Concomitant]
     Dosage: 1 UNK, UNK
     Dates: start: 20131104

REACTIONS (5)
  - Aspartate aminotransferase increased [Recovered/Resolved]
  - Alanine aminotransferase increased [Recovering/Resolving]
  - Blood cholesterol increased [Unknown]
  - Urinary retention [Unknown]
  - Muscle twitching [Unknown]
